FAERS Safety Report 21847143 (Version 5)
Quarter: 2023Q1

REPORT INFORMATION
  Report Type: Other
  Country: AR (occurrence: None)
  Receive Date: 20230111
  Receipt Date: 20230127
  Transmission Date: 20230418
  Serious: Yes (Hospitalization)
  Sender: FDA-Public Use
  Company Number: AR-ROCHE-3256609

PATIENT
  Age: 73 Year
  Sex: Male
  Weight: 70 kg

DRUGS (11)
  1. POLATUZUMAB VEDOTIN [Suspect]
     Active Substance: POLATUZUMAB VEDOTIN
     Indication: Diffuse large B-cell lymphoma
     Dosage: CYCLE 1
     Route: 042
     Dates: start: 20221207
  2. POLATUZUMAB VEDOTIN [Suspect]
     Active Substance: POLATUZUMAB VEDOTIN
     Dosage: CYCLE 2, DOSE 1.8 MG/KG?DAY 1. CYCLE 2
     Route: 041
     Dates: start: 20221227
  3. POLATUZUMAB VEDOTIN [Suspect]
     Active Substance: POLATUZUMAB VEDOTIN
     Dosage: CYCLE 3
     Route: 042
     Dates: start: 20230119
  4. RITUXIMAB [Suspect]
     Active Substance: RITUXIMAB
     Indication: Diffuse large B-cell lymphoma
     Dosage: DAY 1, CYCLES EVERY 21 DAYS - CYCLE 2
     Route: 041
     Dates: start: 20221226
  5. RITUXIMAB [Suspect]
     Active Substance: RITUXIMAB
     Dosage: CYCLE 1
     Route: 041
     Dates: start: 20221207
  6. RITUXIMAB [Suspect]
     Active Substance: RITUXIMAB
     Dosage: CYCLE 3
     Route: 041
     Dates: start: 20230119
  7. BENDAMUSTINE [Suspect]
     Active Substance: BENDAMUSTINE
     Indication: Diffuse large B-cell lymphoma
     Dosage: CYCLE 1
     Route: 042
     Dates: start: 20221207
  8. BENDAMUSTINE [Suspect]
     Active Substance: BENDAMUSTINE
     Dosage: DAY 1 AND 2, CYCLES EVERY 21 DAYS - CYCLE 2
     Route: 041
     Dates: start: 20221226
  9. BENDAMUSTINE [Suspect]
     Active Substance: BENDAMUSTINE
     Dosage: CYCLE 3
     Route: 042
     Dates: start: 20230119
  10. ENALAPRIL [Concomitant]
     Active Substance: ENALAPRIL
     Indication: Hypertension
  11. PANTOPRAZOLE SODIUM [Concomitant]
     Active Substance: PANTOPRAZOLE SODIUM
     Indication: Gastritis

REACTIONS (2)
  - Febrile neutropenia [Recovered/Resolved]
  - Mucosal inflammation [Recovered/Resolved]

NARRATIVE: CASE EVENT DATE: 20230102
